FAERS Safety Report 22322183 (Version 2)
Quarter: 2023Q2

REPORT INFORMATION
  Report Type: Other
  Country: US (occurrence: None)
  Receive Date: 20230516
  Receipt Date: 20230601
  Transmission Date: 20230721
  Serious: No
  Sender: FDA-Public Use
  Company Number: US-ROCHE-3349245

PATIENT
  Age: 57 Year
  Sex: Female
  Weight: 65.83 kg

DRUGS (6)
  1. OCREVUS [Suspect]
     Active Substance: OCRELIZUMAB
     Indication: Relapsing-remitting multiple sclerosis
     Dosage: LAST DATE OF TREATMENT: 01/SEP/2021, 27/MAR/2023?300 MG IV INFUSION EVERY 6 MONTHS
     Route: 042
  2. LOSARTAN POTASSIUM [Concomitant]
     Active Substance: LOSARTAN POTASSIUM
  3. LEVOTHYROXINE [Concomitant]
     Active Substance: LEVOTHYROXINE
  4. OXTELLAR XR [Concomitant]
     Active Substance: OXCARBAZEPINE
  5. METRONIDAZOLE [Concomitant]
     Active Substance: METRONIDAZOLE
  6. ALPRAZOLAM [Concomitant]
     Active Substance: ALPRAZOLAM

REACTIONS (3)
  - COVID-19 [Recovered/Resolved]
  - Cough [Not Recovered/Not Resolved]
  - Off label use [Unknown]

NARRATIVE: CASE EVENT DATE: 20220101
